FAERS Safety Report 6943924-3 (Version None)
Quarter: 2010Q3

REPORT INFORMATION
  Report Type: 
  Country: None (occurrence: None)
  Receive Date: 20100826
  Receipt Date: 20100818
  Transmission Date: 20110219
  Serious: Yes (Death, Life-Threatening)
  Sender: FDA-Public Use
  Company Number: B0670404A

PATIENT
  Sex: Male

DRUGS (10)
  1. TELZIR [Suspect]
     Indication: HIV INFECTION
     Dosage: 700MG TWICE PER DAY
     Route: 048
     Dates: start: 20040101
  2. ISENTRESS [Suspect]
     Indication: HIV INFECTION
     Dosage: 400MG TWICE PER DAY
     Route: 048
     Dates: start: 20100129, end: 20100304
  3. SUSTIVA [Suspect]
     Indication: HIV INFECTION
     Dosage: 600MG PER DAY
     Route: 048
     Dates: start: 20040101
  4. NORVIR [Suspect]
     Indication: HIV INFECTION
     Dosage: 100MG TWICE PER DAY
     Route: 048
     Dates: start: 20040101
  5. GLUCOVANCE [Suspect]
     Dosage: 2U TWICE PER DAY
     Route: 065
     Dates: start: 20050101
  6. REVATIO [Suspect]
     Indication: PULMONARY HYPERTENSION
     Dosage: 20MG THREE TIMES PER DAY
     Route: 065
     Dates: start: 20090701
  7. RISPERDAL [Concomitant]
     Indication: DEPRESSION
     Dosage: 4MG TWICE PER DAY
     Route: 065
     Dates: start: 20050101
  8. EFFEXOR [Concomitant]
     Indication: DEPRESSION
     Dosage: 37.5MG PER DAY
     Route: 065
     Dates: start: 20050101
  9. MEPRONIZINE [Concomitant]
     Indication: DEPRESSION
     Dosage: 1U UNKNOWN
     Route: 065
     Dates: start: 20050101
  10. ATARAX [Concomitant]
     Indication: DEPRESSION
     Dosage: 100MG UNKNOWN
     Route: 065
     Dates: start: 20050101

REACTIONS (6)
  - DYSPNOEA [None]
  - HYPERLACTACIDAEMIA [None]
  - INSOMNIA [None]
  - METABOLIC ACIDOSIS [None]
  - SHOCK [None]
  - VENTRICULAR ARRHYTHMIA [None]
